FAERS Safety Report 5720720-6 (Version None)
Quarter: 2008Q2

REPORT INFORMATION
  Report Type: 
  Country: None (occurrence: None)
  Receive Date: 20080425
  Receipt Date: 20080425
  Transmission Date: 20081010
  Serious: No
  Sender: FDA-Public Use
  Company Number: None

PATIENT
  Age: 52 Year

DRUGS (1)
  1. QUETIAPINE FUMARATE [Suspect]
     Indication: BIPOLAR I DISORDER
     Dosage: 25 MG  TID  PO
     Route: 048
     Dates: start: 20010328, end: 20070315

REACTIONS (3)
  - HYPERSENSITIVITY [None]
  - RASH PRURITIC [None]
  - URTICARIA [None]
